FAERS Safety Report 9345460 (Version 1)
Quarter: 2013Q2

REPORT INFORMATION
  Report Type: Spontaneous
  Country: BR (occurrence: BR)
  Receive Date: 20130613
  Receipt Date: 20130613
  Transmission Date: 20140414
  Serious: No
  Sender: FDA-Public Use
  Company Number: BR-ROCHE-1235755

PATIENT
  Age: 1 Year
  Sex: Male
  Weight: 10 kg

DRUGS (3)
  1. TAMIFLU [Suspect]
     Indication: PYREXIA
     Dosage: 75 MG DILUTED IN 5 ML OF WATER
     Route: 065
     Dates: start: 20130605
  2. ALIVIUM [Concomitant]
     Indication: PAIN
  3. ALIVIUM [Concomitant]
     Indication: PYREXIA

REACTIONS (6)
  - Erythema [Not Recovered/Not Resolved]
  - Pruritus [Not Recovered/Not Resolved]
  - Lymphocyte count abnormal [Not Recovered/Not Resolved]
  - White blood cell count abnormal [Not Recovered/Not Resolved]
  - Hypersensitivity [Not Recovered/Not Resolved]
  - Medication error [Unknown]
